FAERS Safety Report 4282852-1 (Version None)
Quarter: 2004Q1

REPORT INFORMATION
  Report Type: 
  Country: None (occurrence: None)
  Receive Date: 20040130
  Receipt Date: 20030623
  Transmission Date: 20041129
  Serious: No
  Sender: FDA-Public Use
  Company Number: US-BRISTOL-MYERS SQUIBB COMPANY-12308607

PATIENT
  Age: 63 Year
  Sex: Female

DRUGS (6)
  1. SERZONE [Suspect]
     Indication: BIPOLAR I DISORDER
     Dosage: 200 MG TABLET IN THE AM AND 250 MG TABLET IN THE PM
     Route: 048
  2. ZYPREXA [Concomitant]
  3. TRANXENE [Concomitant]
  4. DURAGESIC [Concomitant]
  5. NEURONTIN [Concomitant]
  6. COLACE [Concomitant]

REACTIONS (2)
  - BLOOD ALBUMIN DECREASED [None]
  - HEPATIC FUNCTION ABNORMAL [None]
